FAERS Safety Report 4532393-9 (Version None)
Quarter: 2004Q4

REPORT INFORMATION
  Report Type: 
  Country: None (occurrence: None)
  Receive Date: 20041217
  Receipt Date: 20041209
  Transmission Date: 20050328
  Serious: No
  Sender: FDA-Public Use
  Company Number: 21435

PATIENT
  Age: 74 Year
  Sex: Male
  Weight: 92.9874 kg

DRUGS (5)
  1. NIASPAN [Suspect]
     Indication: BLOOD CHOLESTEROL INCREASED
     Dosage: 500 MG QHS PO
     Route: 048
     Dates: start: 20030101, end: 20040701
  2. ACTOS/USA/ [Concomitant]
  3. GLUCOPHAGE [Concomitant]
  4. ZETIA [Concomitant]
  5. DIOVAN [Concomitant]

REACTIONS (1)
  - INTRAOCULAR PRESSURE INCREASED [None]
